FAERS Safety Report 24194576 (Version 1)
Quarter: 2024Q3

REPORT INFORMATION
  Report Type: Spontaneous
  Country: US (occurrence: US)
  Receive Date: 20240809
  Receipt Date: 20240809
  Transmission Date: 20241016
  Serious: No
  Sender: ELI LILLY AND CO
  Company Number: US-ELI_LILLY_AND_COMPANY-US202408004788

PATIENT
  Age: 51 Year
  Sex: Female

DRUGS (1)
  1. TALTZ [Suspect]
     Active Substance: IXEKIZUMAB
     Indication: Axial spondyloarthritis
     Dosage: 80 MG, OTHER (EVERY 4 WEEKS)
     Route: 058

REACTIONS (4)
  - Pyrexia [Unknown]
  - Arthralgia [Unknown]
  - Paraesthesia [Unknown]
  - Influenza like illness [Unknown]
